FAERS Safety Report 4618012-1 (Version None)
Quarter: 2005Q1

REPORT INFORMATION
  Report Type: 
  Country: None (occurrence: None)
  Receive Date: 20050322
  Receipt Date: 20050311
  Transmission Date: 20050727
  Serious: Yes (Hospitalization)
  Sender: FDA-Public Use
  Company Number: 2005037109

PATIENT
  Age: 40 Year
  Sex: 0
  Weight: 76 kg

DRUGS (3)
  1. CELEBREX [Suspect]
     Indication: PAIN
     Dosage: 200 MG (200 MG, 1 IN 1 D), ORAL
     Route: 048
     Dates: start: 20040828, end: 20050223
  2. DIHYDROCODEINE (DIHYDROCODEINE) [Concomitant]
  3. ACETAMINOPHEN [Concomitant]

REACTIONS (4)
  - ASTHENIA [None]
  - DYSPNOEA [None]
  - PALPITATIONS [None]
  - URTICARIA [None]
